FAERS Safety Report 10193151 (Version 1)
Quarter: 2014Q2

REPORT INFORMATION
  Report Type: Spontaneous
  Country: US (occurrence: US)
  Receive Date: 20140524
  Receipt Date: 20140524
  Transmission Date: 20141212
  Serious: No
  Sender: FDA-Public Use
  Company Number: US-SA-2013SA115630

PATIENT
  Sex: Male

DRUGS (3)
  1. LANTUS [Suspect]
     Dosage: DOSE:30 UNIT(S)
     Route: 058
  2. INSULIN [Suspect]
     Route: 065
  3. ALL OTHER THERAPEUTIC PRODUCTS [Concomitant]

REACTIONS (4)
  - Speech disorder [Not Recovered/Not Resolved]
  - Oropharyngeal pain [Not Recovered/Not Resolved]
  - Blood glucose abnormal [Not Recovered/Not Resolved]
  - Incorrect product storage [Unknown]
